FAERS Safety Report 15969508 (Version 1)
Quarter: 2019Q1

REPORT INFORMATION
  Report Type: Spontaneous
  Country: US (occurrence: US)
  Receive Date: 20190215
  Receipt Date: 20190215
  Transmission Date: 20190418
  Serious: No
  Sender: FDA-Public Use
  Company Number: US-PFIZER INC-2019069382

PATIENT
  Age: 2 Year
  Sex: Female

DRUGS (1)
  1. GENOTROPIN MQ [Suspect]
     Active Substance: SOMATROPIN
     Dosage: 0.4 MG, DAILY
     Dates: start: 20180829

REACTIONS (12)
  - Aspartate aminotransferase increased [Unknown]
  - White blood cells urine positive [Unknown]
  - Blood thyroid stimulating hormone decreased [Unknown]
  - Basophil count increased [Unknown]
  - Urinary casts present [Unknown]
  - Eosinophil count increased [Unknown]
  - Thyroxine free decreased [Unknown]
  - Lymphocyte count increased [Unknown]
  - Emotional disorder [Unknown]
  - Blood alkaline phosphatase decreased [Unknown]
  - Monocyte count decreased [Unknown]
  - Blood glucose increased [Unknown]
